FAERS Safety Report 4980366-4 (Version None)
Quarter: 2006Q2

REPORT INFORMATION
  Report Type: 
  Country: None (occurrence: None)
  Receive Date: 20060424
  Receipt Date: 20060412
  Transmission Date: 20061013
  Serious: Yes (Hospitalization)
  Sender: FDA-Public Use
  Company Number: PHBS2006JP05503

PATIENT
  Age: 64 Year
  Sex: Male

DRUGS (3)
  1. CYCLOSPORINE [Suspect]
     Indication: PSORIATIC ARTHROPATHY
     Dosage: 3 MG/KG/D
     Route: 048
     Dates: start: 20050301
  2. ROCALTROL [Suspect]
  3. ENBREL [Concomitant]
     Dosage: 25 MG/D
     Route: 058
     Dates: start: 20050818

REACTIONS (2)
  - HYPERCALCAEMIA [None]
  - NEPHROPATHY TOXIC [None]
